FAERS Safety Report 4551232-3 (Version None)
Quarter: 2005Q1

REPORT INFORMATION
  Report Type: 
  Country: None (occurrence: None)
  Receive Date: 20050110
  Receipt Date: 20050103
  Transmission Date: 20050727
  Serious: Yes (Hospitalization)
  Sender: FDA-Public Use
  Company Number: 2005CG00011

PATIENT
  Age: 78 Year
  Sex: Female

DRUGS (6)
  1. OMEPRAZOLE [Suspect]
     Indication: ULCER
     Dosage: 20 MG QD PO
     Route: 048
  2. CAPTEA [Suspect]
     Indication: ESSENTIAL HYPERTENSION
  3. TENSTATEN [Suspect]
     Indication: ESSENTIAL HYPERTENSION
     Dosage: 50 MG QD PO
     Route: 048
  4. TRIVASTAL [Suspect]
     Indication: PARKINSON'S DISEASE
     Dosage: 40 MG BID PO
     Route: 048
  5. FONZYLANE [Suspect]
     Indication: ARTERIOPATHIC DISEASE
     Dosage: 150 MG BID PO
     Route: 048
  6. KARDEGIC [Suspect]
     Dosage: 160 MG QD PO
     Route: 048

REACTIONS (4)
  - ANTINUCLEAR ANTIBODY POSITIVE [None]
  - DIFFICULTY IN WALKING [None]
  - PARKINSON'S DISEASE [None]
  - SYSTEMIC LUPUS ERYTHEMATOSUS [None]
